FAERS Safety Report 7917926-4 (Version None)
Quarter: 2011Q4

REPORT INFORMATION
  Report Type: 
  Country: None (occurrence: None)
  Receive Date: 20111116
  Receipt Date: 20111110
  Transmission Date: 20120403
  Serious: Yes (Other)
  Sender: FDA-Public Use
  Company Number: PHEH2011US009192

PATIENT
  Age: 80 Year
  Sex: Female

DRUGS (2)
  1. RECLAST [Suspect]
     Dosage: UNK
     Route: 042
  2. ANTIHYPERTENSIVE DRUGS [Concomitant]

REACTIONS (1)
  - UPPER LIMB FRACTURE [None]
